FAERS Safety Report 19926041 (Version 3)
Quarter: 2022Q3

REPORT INFORMATION
  Report Type: Spontaneous
  Country: US (occurrence: US)
  Receive Date: 20211006
  Receipt Date: 20220919
  Transmission Date: 20221026
  Serious: Yes (Other)
  Sender: FDA-Public Use
  Company Number: US-PFIZER INC-202101308543

PATIENT
  Age: 57 Year
  Sex: Male

DRUGS (1)
  1. LEVOPHED [Suspect]
     Active Substance: NOREPINEPHRINE BITARTRATE
     Dosage: 16 MG (IN 5% 250 ML DEXTROSE)
     Route: 042

REACTIONS (2)
  - Gangrene [Unknown]
  - Vasoconstriction [Unknown]

NARRATIVE: CASE EVENT DATE: 20200901
